FAERS Safety Report 8077532-0 (Version None)
Quarter: 2012Q1

REPORT INFORMATION
  Report Type: 
  Country: None (occurrence: None)
  Receive Date: 20120127
  Receipt Date: 20120123
  Transmission Date: 20120608
  Serious: No
  Sender: FDA-Public Use
  Company Number: US-PFIZER INC-2012012790

PATIENT
  Sex: Female

DRUGS (1)
  1. LYRICA [Suspect]
     Dosage: 25 MG, 2X/DAY

REACTIONS (10)
  - WITHDRAWAL SYNDROME [None]
  - TREMOR [None]
  - HYPERSOMNIA [None]
  - PARAESTHESIA [None]
  - DECREASED APPETITE [None]
  - VOMITING [None]
  - NAUSEA [None]
  - INSOMNIA [None]
  - HYPERHIDROSIS [None]
  - MALAISE [None]
